FAERS Safety Report 6678729-4 (Version None)
Quarter: 2010Q2

REPORT INFORMATION
  Report Type: 
  Country: None (occurrence: None)
  Receive Date: 20100413
  Receipt Date: 20100401
  Transmission Date: 20101027
  Serious: Yes (Other)
  Sender: FDA-Public Use
  Company Number: US-PFIZER INC-2010042540

PATIENT
  Sex: Female
  Weight: 103 kg

DRUGS (3)
  1. ZYVOX [Suspect]
     Indication: WOUND INFECTION STAPHYLOCOCCAL
     Dosage: 600 MG, 2X/DAY
     Route: 048
     Dates: start: 20100301, end: 20100301
  2. LISINOPRIL [Concomitant]
     Indication: HYPERTENSION
     Dosage: 10 MG, 1X/DAY
  3. LAMICTAL CD [Concomitant]
     Indication: CONVULSION
     Dosage: UNK

REACTIONS (5)
  - BLOOD PRESSURE INCREASED [None]
  - PERIPHERAL COLDNESS [None]
  - RASH [None]
  - SEBORRHOEA [None]
  - WOUND INFECTION STAPHYLOCOCCAL [None]
